FAERS Safety Report 12731713 (Version 1)
Quarter: 2016Q3

REPORT INFORMATION
  Report Type: Spontaneous
  Country: US (occurrence: US)
  Receive Date: 20160909
  Receipt Date: 20160909
  Transmission Date: 20161109
  Serious: Yes (Life-Threatening, Hospitalization)
  Sender: FDA-Public Use
  Company Number: None

PATIENT
  Age: 59 Year
  Sex: Male
  Weight: 108.86 kg

DRUGS (7)
  1. EQUATE FIBER THERAPY SMOOTH TEXTURE ORANGE FLAVOR [Suspect]
     Active Substance: PSYLLIUM HUSK
     Indication: BOWEL MOVEMENT IRREGULARITY
     Dosage: 1 TEASPOON 3X DAILY MIX IN WATER
     Dates: end: 20160215
  2. HCTZ [Concomitant]
     Active Substance: HYDROCHLOROTHIAZIDE
  3. OMEPRAZOLE. [Concomitant]
     Active Substance: OMEPRAZOLE
  4. SIMIVISTATIN [Concomitant]
  5. MULTI-VITAMIN [Concomitant]
     Active Substance: .ALPHA.-TOCOPHEROL ACETATE, DL-\ASCORBIC ACID\CYANOCOBALAMIN\FLUORIDE ION\FOLIC ACID\NIACIN\PYRIDOXINE\RIBOFLAVIN\THIAMINE\VITAMIN A\VITAMIN D
  6. METFORMIN [Concomitant]
     Active Substance: METFORMIN HYDROCHLORIDE
  7. LISINOPRIL. [Concomitant]
     Active Substance: LISINOPRIL

REACTIONS (4)
  - Accidental overdose [None]
  - Small intestinal obstruction [None]
  - Product label issue [None]
  - Cardiogenic shock [None]

NARRATIVE: CASE EVENT DATE: 20160215
